FAERS Safety Report 7116762-9 (Version None)
Quarter: 2010Q4

REPORT INFORMATION
  Report Type: 
  Country: None (occurrence: None)
  Receive Date: 20101122
  Receipt Date: 20101110
  Transmission Date: 20110411
  Serious: Yes (Hospitalization)
  Sender: FDA-Public Use
  Company Number: GXKR2010ES12726

PATIENT
  Age: 63 Year
  Sex: Male

DRUGS (2)
  1. METFORMIN SANDOZ (NGX) [Suspect]
     Indication: TYPE 2 DIABETES MELLITUS
     Dosage: 1700 MG/DAY
     Route: 048
     Dates: start: 20090218, end: 20100223
  2. ASTUCOR [Suspect]
     Indication: DYSLIPIDAEMIA
     Dosage: 1 TABLET/DAY
     Route: 048
     Dates: start: 20090124, end: 20100223

REACTIONS (1)
  - HEPATITIS CHOLESTATIC [None]
